FAERS Safety Report 4504625-4 (Version None)
Quarter: 2004Q4

REPORT INFORMATION
  Report Type: 
  Country: None (occurrence: None)
  Receive Date: 20041116
  Receipt Date: 20041013
  Transmission Date: 20050328
  Serious: Yes (Other)
  Sender: FDA-Public Use
  Company Number: 2004-DE-05597DE

PATIENT
  Age: 73 Year
  Sex: Male

DRUGS (4)
  1. PRAMIPEXOLE (PRAMIPEXOLE DIHYDROCHLORIDE) (NR) [Suspect]
     Dosage: 45 MG
     Route: 048
     Dates: start: 19950111
  2. THYREX SANABO [Concomitant]
  3. LEXOTANIL (BROMAZEPAM) [Concomitant]
  4. SINEMET [Concomitant]

REACTIONS (6)
  - ANXIETY [None]
  - ASTHENIA [None]
  - CEREBRAL ATROPHY [None]
  - CONSTIPATION [None]
  - CORONARY ARTERY DISEASE [None]
  - DEPRESSION [None]
